FAERS Safety Report 9775623 (Version 2)
Quarter: 2013Q4

REPORT INFORMATION
  Report Type: Spontaneous
  Country: DE (occurrence: DE)
  Receive Date: 20131220
  Receipt Date: 20131220
  Transmission Date: 20140711
  Serious: Yes (Hospitalization)
  Sender: FDA-Public Use
  Company Number: DE-UCBSA-105871

PATIENT
  Age: 42 Year
  Sex: Male
  Weight: 97 kg

DRUGS (5)
  1. VIMPAT [Suspect]
     Dosage: UNKNOWN AMOUNT DURING ONE DAY TOTAL AMOUNT 600 MG
     Route: 048
     Dates: start: 201311
  2. LEVETIRACETAM [Suspect]
     Dosage: UNKNOWN AMOUNT DURING ONE DAY , TOTAL AMOUNT 4500 MG
     Route: 048
     Dates: start: 201311
  3. METOHEXAL SUCC [Suspect]
     Dosage: DRUG STRENGTH: 23.75 MG 2 TABLETS DURING ONE DAY, TOTAL AMOUNT 47.5 MG
     Route: 048
     Dates: start: 201311
  4. KINZALMONO [Suspect]
     Dosage: UNKNOWN AMOUNT DURING ONE DAY TOTAL AMOUNT 320 MG
     Route: 048
     Dates: start: 201311
  5. TOPIRAMAT [Suspect]
     Dosage: DRUG STRENGTH:25 (UNITS UNSPECIFIED) 3 TABLETS TOTAL AMOUNT :75 MG
     Route: 048
     Dates: start: 201311

REACTIONS (2)
  - Accidental exposure to product [Recovered/Resolved]
  - Overdose [Unknown]
